FAERS Safety Report 11003458 (Version 1)
Quarter: 2015Q2

REPORT INFORMATION
  Report Type: Spontaneous
  Country: US (occurrence: US)
  Receive Date: 20150409
  Receipt Date: 20150409
  Transmission Date: 20150821
  Serious: Yes (Other)
  Sender: FDA-Public Use
  Company Number: US-009507513-1504USA002570

PATIENT
  Sex: Female

DRUGS (2)
  1. FLUOROURACIL. [Suspect]
     Active Substance: FLUOROURACIL
     Indication: SKIN CANCER
     Dosage: UNK, TWICE DAILY
     Dates: start: 20150130, end: 20150224
  2. NASONEX [Suspect]
     Active Substance: MOMETASONE FUROATE
     Dosage: ONE OR TWO SPRAYS IN EACH NOSTRIL UP TO TWICE A DAY AS NEEDED
     Route: 045

REACTIONS (3)
  - Skin erosion [Unknown]
  - Skin infection [Unknown]
  - Skin cancer [Unknown]

NARRATIVE: CASE EVENT DATE: 2015
